FAERS Safety Report 6271359-8 (Version None)
Quarter: 2009Q3

REPORT INFORMATION
  Report Type: 
  Country: None (occurrence: None)
  Receive Date: 20090717
  Receipt Date: 20090708
  Transmission Date: 20100115
  Serious: Yes (Hospitalization)
  Sender: FDA-Public Use
  Company Number: US-CELGENEUS-163-21880-09070584

PATIENT
  Sex: Female

DRUGS (2)
  1. REVLIMID [Suspect]
     Indication: MULTIPLE MYELOMA
     Route: 048
     Dates: start: 20090401
  2. REVLIMID [Suspect]
     Dosage: 25-15MG
     Route: 048
     Dates: start: 20080501

REACTIONS (5)
  - BONE PAIN [None]
  - FATIGUE [None]
  - HAEMORRHOIDAL HAEMORRHAGE [None]
  - MYALGIA [None]
  - PHOTOPHOBIA [None]
